FAERS Safety Report 20545868 (Version 1)
Quarter: 2022Q1

REPORT INFORMATION
  Report Type: Spontaneous
  Country: US (occurrence: None)
  Receive Date: 20220302
  Receipt Date: 20220302
  Transmission Date: 20220423
  Serious: Yes (Death)
  Sender: FDA-Public Use
  Company Number: None

PATIENT
  Age: 52 Year
  Sex: Male

DRUGS (1)
  1. SANCUSO [Suspect]
     Active Substance: GRANISETRON
     Indication: Prophylaxis of nausea and vomiting
     Dosage: OTHER STRENGTH : 3.1MG/24HOUR;?FREQUENCY : WEEKLY;?
     Dates: start: 20220204, end: 20220302

REACTIONS (1)
  - Death [None]

NARRATIVE: CASE EVENT DATE: 20220215
